FAERS Safety Report 24712999 (Version 1)
Quarter: 2024Q4

REPORT INFORMATION
  Report Type: Spontaneous
  Country: CN (occurrence: CN)
  Receive Date: 20241209
  Receipt Date: 20241209
  Transmission Date: 20250115
  Serious: Yes (Life-Threatening, Other)
  Sender: ORGANON
  Company Number: CN-ORGANON-O2412CHN000420

PATIENT
  Age: 71 Year
  Sex: Female

DRUGS (1)
  1. DIPROSPAN [Suspect]
     Active Substance: BETAMETHASONE DIPROPIONATE\BETAMETHASONE SODIUM PHOSPHATE
     Indication: Osteoarthritis
     Dosage: 2ML, ONCE, INTRA-ARTICULAR INJECTION||
     Route: 014
     Dates: start: 20241121, end: 20241121

REACTIONS (5)
  - Anaphylactic shock [Recovering/Resolving]
  - Laryngeal obstruction [Recovering/Resolving]
  - Urticaria [Recovering/Resolving]
  - Glossoptosis [Unknown]
  - Apathy [Unknown]

NARRATIVE: CASE EVENT DATE: 20241121
